FAERS Safety Report 4588527-3 (Version None)
Quarter: 2005Q1

REPORT INFORMATION
  Report Type: 
  Country: None (occurrence: None)
  Receive Date: 20050222
  Receipt Date: 20050210
  Transmission Date: 20050727
  Serious: Yes (Hospitalization, Disabling, Other)
  Sender: FDA-Public Use
  Company Number: 200510599FR

PATIENT
  Age: 39 Year
  Sex: Male

DRUGS (2)
  1. LANTUS [Suspect]
     Indication: DIABETES MELLITUS INSULIN-DEPENDENT
     Route: 058
     Dates: start: 20031201, end: 20041201
  2. HUMALOG [Concomitant]
     Indication: DIABETES MELLITUS INSULIN-DEPENDENT
     Route: 058

REACTIONS (7)
  - FLUID RETENTION [None]
  - GENERALISED OEDEMA [None]
  - MYALGIA [None]
  - PAIN [None]
  - SODIUM RETENTION [None]
  - TENDON DISORDER [None]
  - WEIGHT INCREASED [None]
